FAERS Safety Report 17876444 (Version 1)
Quarter: 2020Q2

REPORT INFORMATION
  Report Type: Spontaneous
  Country: CN (occurrence: CN)
  Receive Date: 20200609
  Receipt Date: 20200609
  Transmission Date: 20200714
  Serious: Yes (Other)
  Sender: FDA-Public Use
  Company Number: CN-ASPEN-GLO2020CN005528

PATIENT
  Age: 10 Year
  Sex: Female

DRUGS (4)
  1. FLUDARABINE [Suspect]
     Active Substance: FLUDARABINE PHOSPHATE
     Indication: BONE MARROW CONDITIONING REGIMEN
     Dosage: 50 MG, -4 TO -2D
     Route: 065
  2. CYCLOPHOSPHAMIDE. [Suspect]
     Active Substance: CYCLOPHOSPHAMIDE
     Indication: BONE MARROW CONDITIONING REGIMEN
     Dosage: 0.9 UNK, -4 TO -2D
     Route: 065
  3. ANTILYMPHOCYTE GLOBULIN [Suspect]
     Active Substance: THYMOCYTE IMMUNE GLOBULIN NOS
     Indication: BONE MARROW CONDITIONING REGIMEN
     Dosage: 100 MG -4 TO -1D
     Route: 065
  4. BUSULFAN. [Suspect]
     Active Substance: BUSULFAN
     Indication: BONE MARROW CONDITIONING REGIMEN
     Dosage: 17.5 MG, -6 TO -5D
     Route: 065

REACTIONS (11)
  - Posterior reversible encephalopathy syndrome [Recovered/Resolved]
  - Cytomegalovirus viraemia [Unknown]
  - Hyperpyrexia [Unknown]
  - Cytokine abnormal [Recovered/Resolved]
  - Diarrhoea [Unknown]
  - Nystagmus [Recovered/Resolved]
  - Epilepsy [Recovered/Resolved]
  - Blood pressure increased [Recovered/Resolved]
  - Heart rate increased [Recovered/Resolved]
  - Muscle spasms [Recovered/Resolved]
  - Haematuria [Unknown]
